FAERS Safety Report 5682828-3 (Version None)
Quarter: 2008Q1

REPORT INFORMATION
  Report Type: 
  Country: None (occurrence: None)
  Receive Date: 20080327
  Receipt Date: 20080321
  Transmission Date: 20080703
  Serious: Yes (Life-Threatening, Disabling, Other)
  Sender: FDA-Public Use
  Company Number: A0716809A

PATIENT
  Age: 72 Year
  Sex: Female

DRUGS (19)
  1. ADVAIR DISKUS 100/50 [Suspect]
     Indication: CHRONIC OBSTRUCTIVE PULMONARY DISEASE
     Dosage: 1PUFF TWICE PER DAY
     Route: 055
     Dates: start: 20080204, end: 20080205
  2. UNSPECIFIED MEDICATION [Concomitant]
  3. POTASSIUM CHLORIDE [Concomitant]
  4. FUROSEMIDE [Concomitant]
  5. UNSPECIFIED MEDICATION [Concomitant]
  6. ASPIRIN [Concomitant]
  7. LEVOXYL [Concomitant]
  8. ALBUTEROL [Concomitant]
  9. COMBIVENT [Concomitant]
  10. ATROVENT [Concomitant]
  11. REQUIP [Concomitant]
  12. M.V.I. [Concomitant]
  13. QUININE [Concomitant]
  14. TRAMADOL HCL [Concomitant]
  15. TYLENOL W/ CODEINE NO. 3 [Concomitant]
  16. PERCOCET [Concomitant]
  17. NAPROSYN [Concomitant]
  18. VOLMAX [Concomitant]
  19. ALPRAZOLAM [Concomitant]

REACTIONS (2)
  - ALTERED STATE OF CONSCIOUSNESS [None]
  - HALLUCINATION [None]
